FAERS Safety Report 5412552-3 (Version None)
Quarter: 2007Q3

REPORT INFORMATION
  Report Type: 
  Country: None (occurrence: None)
  Receive Date: 20070813
  Receipt Date: 20070806
  Transmission Date: 20080115
  Serious: Yes (Other)
  Sender: FDA-Public Use
  Company Number: D0053972A

PATIENT
  Age: 21 Year
  Sex: Female

DRUGS (8)
  1. SULTANOL [Suspect]
     Route: 055
  2. COLISTIN SULFATE [Concomitant]
     Route: 048
     Dates: start: 20061201
  3. PULMOZYME [Concomitant]
     Route: 055
  4. YASMIN [Concomitant]
     Indication: CONTRACEPTION
     Route: 048
  5. FORADIL [Concomitant]
     Route: 065
  6. SINUPRET [Concomitant]
     Route: 065
  7. VITAMIN D [Concomitant]
     Route: 065
  8. LOCAL ANAESTHESIA [Concomitant]
     Route: 065

REACTIONS (4)
  - DIZZINESS [None]
  - HALLUCINATION [None]
  - NAUSEA [None]
  - PANIC ATTACK [None]
